FAERS Safety Report 10462698 (Version 1)
Quarter: 2014Q3

REPORT INFORMATION
  Report Type: Spontaneous
  Country: US (occurrence: US)
  Receive Date: 20140918
  Receipt Date: 20140918
  Transmission Date: 20150326
  Serious: No
  Sender: FDA-Public Use
  Company Number: US-BAUSCH-BL-2014-002447

PATIENT
  Age: 61 Year
  Sex: Female

DRUGS (1)
  1. NEOMYCIN AND POLYMYXIN B SULFATES AND DEXAMETHASONE OPHTHALMIC OINTMEN [Suspect]
     Active Substance: DEXAMETHASONE\NEOMYCIN\POLYMYXIN B SULFATE
     Indication: BLEPHARITIS
     Dosage: APPLY TWICE A DAY
     Route: 047
     Dates: start: 20140513

REACTIONS (2)
  - Eyelids pruritus [Recovering/Resolving]
  - Eyelid irritation [Recovering/Resolving]

NARRATIVE: CASE EVENT DATE: 20140514
